FAERS Safety Report 25205071 (Version 1)
Quarter: 2025Q2

REPORT INFORMATION
  Report Type: Spontaneous
  Country: CN (occurrence: CN)
  Receive Date: 20250416
  Receipt Date: 20250416
  Transmission Date: 20250716
  Serious: Yes (Hospitalization)
  Sender: Haleon PLC
  Company Number: CN-HALEON-2238092

PATIENT
  Age: 25 Year
  Sex: Male
  Weight: 102 kg

DRUGS (13)
  1. IBUPROFEN [Suspect]
     Active Substance: IBUPROFEN
     Indication: Pyrexia
     Dosage: THE PATIENT TOOK 1 TABLET OF IBUPROFEN SUSTAINED-RELEASE CAPSULE (FENBID)
     Route: 048
     Dates: start: 20250406, end: 20250406
  2. IBUPROFEN [Suspect]
     Active Substance: IBUPROFEN
     Indication: Nasal obstruction
  3. IBUPROFEN [Suspect]
     Active Substance: IBUPROFEN
     Indication: Rhinorrhoea
  4. AMOXICILLIN [Suspect]
     Active Substance: AMOXICILLIN
     Indication: Nasal obstruction
     Dates: start: 20250406
  5. AMOXICILLIN [Suspect]
     Active Substance: AMOXICILLIN
     Indication: Rhinorrhoea
  6. AMOXICILLIN [Suspect]
     Active Substance: AMOXICILLIN
     Indication: Pyrexia
  7. ACETAMINOPHEN\CHLORPHENIRAMINE MALEATE\DEXTROMETHORPHAN\PSEUDOEPHEDRIN [Suspect]
     Active Substance: ACETAMINOPHEN\CHLORPHENIRAMINE MALEATE\DEXTROMETHORPHAN\PSEUDOEPHEDRINE HYDROCHLORIDE
     Indication: Respiratory tract infection
     Dosage: 1 TABLET OF PARACETAMOL, PSEUDOEPHEDRINE HYDROCHLORIDE, ?DEXTROMETHORPHAN HYDROBROMIDE, AND CHLOR...
     Route: 048
     Dates: start: 20250406, end: 20250406
  8. ACETAMINOPHEN\CHLORPHENIRAMINE MALEATE\DEXTROMETHORPHAN\PSEUDOEPHEDRIN [Suspect]
     Active Substance: ACETAMINOPHEN\CHLORPHENIRAMINE MALEATE\DEXTROMETHORPHAN\PSEUDOEPHEDRINE HYDROCHLORIDE
     Indication: Nasal obstruction
  9. ACETAMINOPHEN\CHLORPHENIRAMINE MALEATE\DEXTROMETHORPHAN\PSEUDOEPHEDRIN [Suspect]
     Active Substance: ACETAMINOPHEN\CHLORPHENIRAMINE MALEATE\DEXTROMETHORPHAN\PSEUDOEPHEDRINE HYDROCHLORIDE
     Indication: Rhinorrhoea
  10. ACETAMINOPHEN\CHLORPHENIRAMINE MALEATE\DEXTROMETHORPHAN\PSEUDOEPHEDRIN [Suspect]
     Active Substance: ACETAMINOPHEN\CHLORPHENIRAMINE MALEATE\DEXTROMETHORPHAN\PSEUDOEPHEDRINE HYDROCHLORIDE
     Indication: Pyrexia
  11. HERBALS [Suspect]
     Active Substance: HERBALS
     Indication: Nasal obstruction
     Dates: start: 20250406
  12. HERBALS [Suspect]
     Active Substance: HERBALS
     Indication: Rhinorrhoea
  13. HERBALS [Suspect]
     Active Substance: HERBALS
     Indication: Pyrexia

REACTIONS (9)
  - Asthenia [Recovering/Resolving]
  - Yellow skin [Recovering/Resolving]
  - Ocular icterus [Recovering/Resolving]
  - Decreased appetite [Recovering/Resolving]
  - Nausea [Recovering/Resolving]
  - Lethargy [Recovering/Resolving]
  - Taciturnity [Recovering/Resolving]
  - Hepatic function abnormal [Recovering/Resolving]
  - Pruritus [Recovering/Resolving]

NARRATIVE: CASE EVENT DATE: 20250407
